FAERS Safety Report 7364777-8 (Version None)
Quarter: 2011Q1

REPORT INFORMATION
  Report Type: 
  Country: None (occurrence: None)
  Receive Date: 20110316
  Receipt Date: 20110316
  Transmission Date: 20110831
  Serious: Yes (Other)
  Sender: FDA-Public Use
  Company Number: None

PATIENT
  Sex: Female
  Weight: 51.9 kg

DRUGS (1)
  1. IMMUNE GLOBULIN (HUMAN) [Suspect]
     Dosage: IV
     Route: 042

REACTIONS (10)
  - COGNITIVE DISORDER [None]
  - FATIGUE [None]
  - ASTHENIA [None]
  - CARDIAC DISORDER [None]
  - ELECTROCARDIOGRAM ST-T CHANGE [None]
  - SEPSIS [None]
  - BACK PAIN [None]
  - INFUSION RELATED REACTION [None]
  - IDIOSYNCRATIC DRUG REACTION [None]
  - DIZZINESS POSTURAL [None]
